FAERS Safety Report 21526039 (Version 2)
Quarter: 2022Q4

REPORT INFORMATION
  Report Type: Spontaneous
  Country: US (occurrence: None)
  Receive Date: 20221031
  Receipt Date: 20221114
  Transmission Date: 20230113
  Serious: No
  Sender: FDA-Public Use
  Company Number: US-Saptalis Pharmaceuticals,LLC-000308

PATIENT
  Age: 73 Year
  Sex: Female

DRUGS (2)
  1. ACETIC ACID [Suspect]
     Active Substance: ACETIC ACID
     Indication: Ear discomfort
     Dosage: 5 DROPS THRICE DAILY
     Route: 001
     Dates: start: 20221017, end: 20221018
  2. LEVOTHYROXINE [Concomitant]
     Active Substance: LEVOTHYROXINE
     Indication: Thyroiditis

REACTIONS (4)
  - Pruritus [Recovered/Resolved]
  - Erythema [Recovered/Resolved]
  - Pain [Recovered/Resolved]
  - Wrong technique in product usage process [Recovered/Resolved]

NARRATIVE: CASE EVENT DATE: 20221018
